FAERS Safety Report 21160893 (Version 1)
Quarter: 2022Q3

REPORT INFORMATION
  Report Type: Spontaneous
  Country: US (occurrence: US)
  Receive Date: 20220802
  Receipt Date: 20220802
  Transmission Date: 20221027
  Serious: No
  Sender: FDA-Public Use
  Company Number: US-AMNEAL PHARMACEUTICALS-2021-AMRX-03601

PATIENT
  Sex: Female

DRUGS (1)
  1. TRAMADOL HYDROCHLORIDE [Suspect]
     Active Substance: TRAMADOL HYDROCHLORIDE
     Indication: Pain management
     Dosage: UNK , EVERY 6HR AS NEEDED
     Route: 048

REACTIONS (3)
  - Drug ineffective [Not Recovered/Not Resolved]
  - Gastrooesophageal reflux disease [Not Recovered/Not Resolved]
  - Product taste abnormal [Not Recovered/Not Resolved]

NARRATIVE: CASE EVENT DATE: 20210101
